FAERS Safety Report 9338663 (Version 1)
Quarter: 2013Q2

REPORT INFORMATION
  Report Type: Spontaneous
  Country: US (occurrence: None)
  Receive Date: 20130605
  Receipt Date: 20130605
  Transmission Date: 20140414
  Serious: Yes (Hospitalization)
  Sender: FDA-Public Use
  Company Number: None

PATIENT
  Age: 10 Year
  Sex: Male
  Weight: 44.4 kg

DRUGS (3)
  1. RISPERIDONE [Suspect]
     Indication: GENERALISED ANXIETY DISORDER
     Route: 048
  2. CYPROHEPTADINE [Concomitant]
  3. ALBUTEROL [Concomitant]

REACTIONS (1)
  - Convulsion [None]
